FAERS Safety Report 7896212-5 (Version None)
Quarter: 2011Q4

REPORT INFORMATION
  Report Type: 
  Country: None (occurrence: None)
  Receive Date: 20111106
  Receipt Date: 20110907
  Transmission Date: 20120403
  Serious: No
  Sender: FDA-Public Use
  Company Number: US-AMGEN-USASP2011046030

PATIENT
  Sex: Female

DRUGS (3)
  1. PLAQUENIL [Concomitant]
  2. ENBREL [Suspect]
     Indication: PRODUCT USED FOR UNKNOWN INDICATION
     Dosage: UNK
     Dates: start: 20110801
  3. METHOTREXATE [Concomitant]

REACTIONS (4)
  - NAUSEA [None]
  - JOINT SWELLING [None]
  - NERVOUSNESS [None]
  - AGITATION [None]
